FAERS Safety Report 19978831 (Version 1)
Quarter: 2021Q4

REPORT INFORMATION
  Report Type: Spontaneous
  Country: US (occurrence: US)
  Receive Date: 20211019
  Receipt Date: 20211019
  Transmission Date: 20220304
  Serious: Yes (Other)
  Sender: FDA-Public Use
  Company Number: None

PATIENT
  Age: 57 Year
  Sex: Male
  Weight: 113.4 kg

DRUGS (14)
  1. CHANTIX [Suspect]
     Active Substance: VARENICLINE TARTRATE
     Indication: Smoking cessation therapy
     Dosage: ?          QUANTITY:2 PILLS DAILY;
     Route: 048
     Dates: start: 202108, end: 20210908
  2. COSOPT [Concomitant]
     Active Substance: DORZOLAMIDE HYDROCHLORIDE\TIMOLOL MALEATE
  3. BRIMONIDINE TARTRATE [Concomitant]
     Active Substance: BRIMONIDINE TARTRATE
  4. LATANOPROST [Concomitant]
     Active Substance: LATANOPROST
  5. LOSARTAN [Concomitant]
     Active Substance: LOSARTAN
  6. Testostedone [Concomitant]
  7. ASPIRIN [Concomitant]
     Active Substance: ASPIRIN
  8. GARLIC [Concomitant]
     Active Substance: GARLIC
  9. Pyguen [Concomitant]
  10. L Aryanie [Concomitant]
  11. VITAMIN D [Concomitant]
     Active Substance: VITAMIN D NOS
  12. CRANBERRY [Concomitant]
     Active Substance: CRANBERRY
  13. ZINC [Concomitant]
     Active Substance: ZINC
  14. Apple Cider Vinager [Concomitant]

REACTIONS (4)
  - Constipation [None]
  - Pain [None]
  - Nausea [None]
  - Headache [None]

NARRATIVE: CASE EVENT DATE: 20210905
